FAERS Safety Report 13893875 (Version 2)
Quarter: 2017Q3

REPORT INFORMATION
  Report Type: Spontaneous
  Country: US (occurrence: US)
  Receive Date: 20170822
  Receipt Date: 20170823
  Transmission Date: 20171127
  Serious: Yes (Hospitalization, Other)
  Sender: FDA-Public Use
  Company Number: US-BAYER-2017-154863

PATIENT
  Age: 74 Year
  Sex: Female
  Weight: 94.79 kg

DRUGS (16)
  1. LOPRESSOR [Concomitant]
     Active Substance: METOPROLOL TARTRATE
     Dosage: UNK
     Dates: start: 2008
  2. BACLOFEN. [Concomitant]
     Active Substance: BACLOFEN
     Dosage: 1 TAB, TID
     Route: 048
     Dates: start: 20170727
  3. LIPITOR [Concomitant]
     Active Substance: ATORVASTATIN CALCIUM
     Dosage: 10 MG DAILY
  4. ASPIRIN 81 MG [Suspect]
     Active Substance: ASPIRIN
     Dosage: 81 MG, QD
     Route: 048
     Dates: start: 2015, end: 20170725
  5. LASIX [Concomitant]
     Active Substance: FUROSEMIDE
     Dosage: UNK
     Dates: start: 2008
  6. LISINOPRIL. [Concomitant]
     Active Substance: LISINOPRIL
     Dosage: UNK
     Route: 048
     Dates: start: 2008
  7. METOPROLOL. [Concomitant]
     Active Substance: METOPROLOL
     Dosage: 1 DF, QD FOR 28 DAYS
     Route: 048
     Dates: start: 20170726
  8. TRAMADOL. [Concomitant]
     Active Substance: TRAMADOL
     Dosage: UNK
     Dates: start: 20170718
  9. STIVARGA [Suspect]
     Active Substance: REGORAFENIB
     Indication: RECTAL CANCER METASTATIC
     Dosage: 120 MG, QD (21 DAYS)
     Route: 048
     Dates: start: 20170718, end: 201707
  10. METOPROLOL. [Concomitant]
     Active Substance: METOPROLOL
     Dosage: 50MG IN MORNING AND 25MG IN NIGHT
     Dates: start: 2008
  11. BENADRYL [Concomitant]
     Active Substance: DIPHENHYDRAMINE HYDROCHLORIDE
     Dosage: UNK
     Dates: start: 2005
  12. FUROSEMIDE. [Concomitant]
     Active Substance: FUROSEMIDE
     Dosage: 0.5 MG, QD
     Route: 048
     Dates: start: 20170727
  13. MOTRIN [Concomitant]
     Active Substance: IBUPROFEN
     Indication: ARTHRITIS
     Dosage: UNK
     Dates: start: 2016, end: 20170725
  14. LISINOPRIL. [Concomitant]
     Active Substance: LISINOPRIL
     Dosage: 1 DF, QD
     Route: 048
     Dates: start: 20170727
  15. LOPRESSOR [Concomitant]
     Active Substance: METOPROLOL TARTRATE
     Dosage: 1 DF, QD (EVERY MORNING)
     Route: 048
     Dates: start: 20170727
  16. ATORVASTATIN [Concomitant]
     Active Substance: ATORVASTATIN
     Dosage: 1 DF, QD (AT BEDTIME)
     Route: 048

REACTIONS (18)
  - Rectal cancer metastatic [None]
  - Mitral valve incompetence [None]
  - Rectal haemorrhage [Recovered/Resolved]
  - Anaemia of chronic disease [Recovering/Resolving]
  - Hypertension [None]
  - Off label use [None]
  - Metastases to lung [None]
  - Bundle branch block left [None]
  - Left ventricular dysfunction [None]
  - Leukocytosis [Recovered/Resolved]
  - Supraventricular tachyarrhythmia [None]
  - Ventricular extrasystoles [None]
  - Haemoglobin decreased [Recovering/Resolving]
  - Blood sodium decreased [None]
  - Electrocardiogram abnormal [None]
  - Rectal tenesmus [None]
  - Left ventricular hypertrophy [None]
  - Haematochezia [Recovered/Resolved]

NARRATIVE: CASE EVENT DATE: 201707
